FAERS Safety Report 22213469 (Version 2)
Quarter: 2023Q2

REPORT INFORMATION
  Report Type: Report from Study
  Country: BR (occurrence: None)
  Receive Date: 20230414
  Receipt Date: 20230526
  Transmission Date: 20230721
  Serious: Yes (Death, Hospitalization)
  Sender: FDA-Public Use
  Company Number: BR-ROCHE-3264322

PATIENT
  Age: 66 Year
  Sex: Female
  Weight: 55.6 kg

DRUGS (8)
  1. ATEZOLIZUMAB [Suspect]
     Active Substance: ATEZOLIZUMAB
     Indication: Breast cancer metastatic
     Dosage: START DATE OF MOST RECENT DOSE OF STUDY DRUG PRIOR TO AE 05/JAN/2023
     Route: 041
     Dates: start: 20220824
  2. ADO-TRASTUZUMAB EMTANSINE [Suspect]
     Active Substance: ADO-TRASTUZUMAB EMTANSINE
     Indication: Breast cancer metastatic
     Dosage: START DATE OF MOST RECENT DOSE 213.5 MG OF STUDY DRUG PRIOR TO AE 05/JAN/2023
     Route: 042
     Dates: start: 20220824
  3. ATENOLOL [Concomitant]
     Active Substance: ATENOLOL
     Route: 048
     Dates: start: 1999, end: 20230302
  4. HYDROCHLOROTHIAZIDE [Concomitant]
     Active Substance: HYDROCHLOROTHIAZIDE
     Route: 048
     Dates: start: 1999, end: 20230302
  5. LOSARTAN [Concomitant]
     Active Substance: LOSARTAN
     Route: 048
     Dates: start: 1999, end: 20230302
  6. ZOMETA [Concomitant]
     Active Substance: ZOLEDRONIC ACID
     Route: 042
     Dates: start: 20220509, end: 20230302
  7. CAFFEINE [Concomitant]
     Active Substance: CAFFEINE
  8. COCAINE [Concomitant]
     Active Substance: COCAINE

REACTIONS (2)
  - Dyspnoea [Recovered/Resolved]
  - Respiratory failure [Fatal]

NARRATIVE: CASE EVENT DATE: 20230110
